FAERS Safety Report 5393052-6 (Version None)
Quarter: 2007Q3

REPORT INFORMATION
  Report Type: 
  Country: None (occurrence: None)
  Receive Date: 20070719
  Receipt Date: 20070711
  Transmission Date: 20080115
  Serious: Yes (Hospitalization)
  Sender: FDA-Public Use
  Company Number: 2007-03272

PATIENT
  Age: 70 Year
  Sex: Female

DRUGS (2)
  1. BISOPROLOL FUMARATE/HYDROCHLOROTHIAZIDE UNKNOWN (WATSON LABORATORIES)( [Suspect]
     Indication: HYPERTENSION
     Dosage: 1 TABLET, SINGLE (5/12.5MG)
     Dates: start: 20060101, end: 20060101
  2. ACETYLSALICYLIC ACID SRT [Concomitant]

REACTIONS (3)
  - NON-CARDIOGENIC PULMONARY OEDEMA [None]
  - SHOCK [None]
  - VENTRICULAR DYSFUNCTION [None]
